FAERS Safety Report 9629954 (Version 2)
Quarter: 2013Q4

REPORT INFORMATION
  Report Type: Spontaneous
  Country: SE (occurrence: SE)
  Receive Date: 20131017
  Receipt Date: 20131106
  Transmission Date: 20140711
  Serious: Yes (Hospitalization)
  Sender: FDA-Public Use
  Company Number: SE-WATSON-2013-18753

PATIENT
  Age: 33 Year
  Sex: Female

DRUGS (1)
  1. STESOLID [Suspect]
     Indication: PRODUCT USED FOR UNKNOWN INDICATION
     Dosage: 110 MG SINGLE
     Route: 065

REACTIONS (1)
  - Toxicity to various agents [Recovered/Resolved]
